FAERS Safety Report 21623211 (Version 1)
Quarter: 2022Q4

REPORT INFORMATION
  Report Type: Spontaneous
  Country: US (occurrence: US)
  Receive Date: 20221121
  Receipt Date: 20221121
  Transmission Date: 20230113
  Serious: No
  Sender: FDA-Public Use
  Company Number: US-BRISTOL-MYERS SQUIBB COMPANY-2022-140212

PATIENT
  Age: 61 Year
  Sex: Male

DRUGS (2)
  1. ONUREG [Suspect]
     Active Substance: AZACITIDINE
     Indication: Acute myeloid leukaemia
     Dosage: 14/28 DAYS, QD ON DAYS 1-14 OF EACH 28-DAY TREATMENT CYCLE
     Route: 065
  2. ONUREG [Suspect]
     Active Substance: AZACITIDINE
     Dosage: 14/28 DAYS, 1-14 OF EACH 28-DAY TREATMENT CYCLE
     Route: 065

REACTIONS (3)
  - Dyspnoea [Unknown]
  - Condition aggravated [Unknown]
  - Oedema peripheral [Unknown]
